FAERS Safety Report 12620005 (Version 1)
Quarter: 2016Q3

REPORT INFORMATION
  Report Type: Spontaneous
  Country: US (occurrence: US)
  Receive Date: 20160803
  Receipt Date: 20160803
  Transmission Date: 20161109
  Serious: No
  Sender: FDA-Public Use
  Company Number: US-ENDO PHARMACEUTICALS INC.-2015-003510

PATIENT
  Sex: Female

DRUGS (2)
  1. PRENATAL VITAMINS [Suspect]
     Active Substance: VITAMINS
     Indication: PRODUCT USED FOR UNKNOWN INDICATION
  2. TESTOPEL [Suspect]
     Active Substance: TESTOSTERONE
     Indication: PRODUCT USED FOR UNKNOWN INDICATION
     Route: 065
     Dates: start: 20150824, end: 20150824

REACTIONS (2)
  - Laceration [Recovered/Resolved]
  - Product package associated injury [Recovered/Resolved]

NARRATIVE: CASE EVENT DATE: 20150824
